FAERS Safety Report 8599069-2 (Version None)
Quarter: 2012Q3

REPORT INFORMATION
  Report Type: 
  Country: None (occurrence: None)
  Receive Date: 20120816
  Receipt Date: 20120807
  Transmission Date: 20120928
  Serious: Yes (Hospitalization, Other)
  Sender: FDA-Public Use
  Company Number: CA-JNJFOC-20120800729

PATIENT
  Sex: Female
  Weight: 44.91 kg

DRUGS (5)
  1. HYDROCORTISONE [Concomitant]
     Route: 042
  2. REMICADE [Suspect]
     Route: 042
     Dates: start: 20120101
  3. REMICADE [Suspect]
     Indication: CROHN'S DISEASE
     Route: 042
     Dates: start: 20120806
  4. REMICADE [Suspect]
     Dosage: INDUCTION DOSE
     Route: 042
     Dates: start: 20120701
  5. HYDROCORTISONE [Concomitant]
     Indication: PREMEDICATION
     Route: 048
     Dates: start: 20120806

REACTIONS (3)
  - INTESTINAL OBSTRUCTION [None]
  - INFUSION RELATED REACTION [None]
  - ABDOMINAL DISTENSION [None]
